FAERS Safety Report 9931817 (Version 1)
Quarter: 2014Q1

REPORT INFORMATION
  Report Type: Spontaneous
  Country: US (occurrence: None)
  Receive Date: 20140227
  Receipt Date: 20140227
  Transmission Date: 20141002
  Serious: Yes (Other)
  Sender: FDA-Public Use
  Company Number: None

PATIENT
  Age: 48 Year
  Sex: Female
  Weight: 68.04 kg

DRUGS (1)
  1. VIVELLE DOT [Suspect]
     Indication: HOT FLUSH
     Dates: start: 20000801, end: 20041015

REACTIONS (11)
  - Dizziness [None]
  - Stress [None]
  - Impaired driving ability [None]
  - Musculoskeletal discomfort [None]
  - Presyncope [None]
  - Breast cancer female [None]
  - Asthenia [None]
  - Weight decreased [None]
  - Impaired work ability [None]
  - Drug withdrawal syndrome [None]
  - Bladder cancer [None]
